FAERS Safety Report 4536018-8 (Version None)
Quarter: 2005Q1

REPORT INFORMATION
  Report Type: 
  Country: None (occurrence: None)
  Receive Date: 20041216
  Receipt Date: 20031201
  Transmission Date: 20050727
  Serious: Yes (Other)
  Sender: FDA-Public Use
  Company Number: HQWYE988903OCT03

PATIENT
  Age: 36 Year
  Sex: Female

DRUGS (5)
  1. EFFEXOR XR [Suspect]
     Dosage: SEE IMAGE
     Route: 048
     Dates: start: 19990101, end: 20020101
  2. EFFEXOR XR [Suspect]
     Dosage: SEE IMAGE
     Route: 048
     Dates: start: 20020101
  3. TRAZODONE HCL [Concomitant]
  4. KLONOPIN [Concomitant]
  5. PHENTERMINE [Concomitant]

REACTIONS (1)
  - HEART RATE INCREASED [None]
